FAERS Safety Report 10631690 (Version 2)
Quarter: 2014Q4

REPORT INFORMATION
  Report Type: Spontaneous
  Country: US (occurrence: US)
  Receive Date: 20141205
  Receipt Date: 20141205
  Transmission Date: 20150529
  Serious: No
  Sender: FDA-Public Use
  Company Number: US-BRISTOL-MYERS SQUIBB COMPANY-21067749

PATIENT
  Sex: Female

DRUGS (1)
  1. YERVOY [Suspect]
     Active Substance: IPILIMUMAB
     Indication: MALIGNANT MELANOMA
     Dosage: INF

REACTIONS (4)
  - Peripheral motor neuropathy [Recovering/Resolving]
  - Muscular weakness [Recovering/Resolving]
  - Vitiligo [Unknown]
  - Fatigue [Recovering/Resolving]
